FAERS Safety Report 5057127-3 (Version None)
Quarter: 2006Q3

REPORT INFORMATION
  Report Type: 
  Country: None (occurrence: None)
  Receive Date: 20060718
  Receipt Date: 20060705
  Transmission Date: 20061208
  Serious: Yes (Death, Other)
  Sender: FDA-Public Use
  Company Number: 2005123897

PATIENT
  Age: 42 Year
  Sex: Male
  Weight: 82.5547 kg

DRUGS (1)
  1. BEXTRA [Suspect]
     Indication: ARTHRALGIA
     Dosage: 10 MG (10 MG, 1 IN 1 D),
     Dates: start: 20020101

REACTIONS (7)
  - ARTERIOSCLEROSIS [None]
  - CORONARY ARTERY DISEASE [None]
  - DIZZINESS [None]
  - FATIGUE [None]
  - MYOCARDIAL INFARCTION [None]
  - SINUS ARRHYTHMIA [None]
  - SUPRAVENTRICULAR EXTRASYSTOLES [None]
